FAERS Safety Report 16656413 (Version 1)
Quarter: 2019Q3

REPORT INFORMATION
  Report Type: Spontaneous
  Country: US (occurrence: US)
  Receive Date: 20190801
  Receipt Date: 20190801
  Transmission Date: 20191004
  Serious: Yes (Other)
  Sender: FDA-Public Use
  Company Number: US-MYLANLABS-2019M1071521

PATIENT
  Age: 47 Year
  Sex: Female

DRUGS (4)
  1. BELIMUMAB [Concomitant]
     Active Substance: BELIMUMAB
     Indication: IMMUNOSUPPRESSANT DRUG THERAPY
     Dosage: UNK
     Route: 065
  2. CIDOFOVIR. [Suspect]
     Active Substance: CIDOFOVIR
     Indication: SKIN PAPILLOMA
     Dosage: 5 MILLIGRAM/KILOGRAM, BIWEEKLY
     Route: 042
  3. SQUARIC ACID DIBUTYLESTER [Suspect]
     Active Substance: SQUARIC ACID DIBUTYL ESTER
     Indication: SKIN PAPILLOMA
     Dosage: 2 PERCENT
     Route: 061
  4. METHYLPREDNISOLONE. [Concomitant]
     Active Substance: METHYLPREDNISOLONE
     Indication: IMMUNOSUPPRESSANT DRUG THERAPY
     Dosage: UNK
     Route: 065

REACTIONS (1)
  - Drug ineffective [Unknown]
